FAERS Safety Report 8968111 (Version 1)
Quarter: 2012Q4

REPORT INFORMATION
  Report Type: Spontaneous
  Country: US (occurrence: None)
  Receive Date: 20121207
  Receipt Date: 20121207
  Transmission Date: 20130627
  Serious: Yes (Other)
  Sender: FDA-Public Use
  Company Number: DSA_61225_2012

PATIENT
  Sex: Male

DRUGS (2)
  1. WELLBUTRIN [Suspect]
     Indication: DEPRESSION
     Dosage: (DF Oral)
  2. WELLBUTRIN [Suspect]
     Indication: SMOKING CESSATION THERAPY
     Dosage: (DF Oral)

REACTIONS (5)
  - Brain injury [None]
  - Dizziness [None]
  - Fall [None]
  - Headache [None]
  - Disturbance in attention [None]
